FAERS Safety Report 12747326 (Version 1)
Quarter: 2016Q3

REPORT INFORMATION
  Report Type: Spontaneous
  Country: US (occurrence: US)
  Receive Date: 20160915
  Receipt Date: 20160915
  Transmission Date: 20161109
  Serious: No
  Sender: FDA-Public Use
  Company Number: US-JAZZ-2016-US-009657

PATIENT
  Sex: Female

DRUGS (26)
  1. PRAZOSIN [Concomitant]
     Active Substance: PRAZOSIN
  2. XYREM [Suspect]
     Active Substance: SODIUM OXYBATE
     Dosage: UNK
     Route: 048
  3. PERCOCET [Concomitant]
     Active Substance: ACETAMINOPHEN\OXYCODONE HYDROCHLORIDE
  4. GABAPENTIN. [Concomitant]
     Active Substance: GABAPENTIN
  5. MULTIVITAMIN [Concomitant]
     Active Substance: VITAMINS
  6. XYREM [Suspect]
     Active Substance: SODIUM OXYBATE
     Indication: SLEEP DISORDER
     Dosage: 3 G, BID
     Route: 048
     Dates: start: 201401, end: 201408
  7. XANAX [Concomitant]
     Active Substance: ALPRAZOLAM
     Dosage: 0.5 MG, QID
  8. TRAZODONE [Concomitant]
     Active Substance: TRAZODONE HYDROCHLORIDE
  9. CHERATUSSIN AC [Concomitant]
     Active Substance: CODEINE PHOSPHATE\GUAIFENESIN
  10. CRANBERRY. [Concomitant]
     Active Substance: CRANBERRY
  11. FERROUS FUMARATE [Concomitant]
     Active Substance: FERROUS FUMARATE
  12. VITAMIN D [Concomitant]
     Active Substance: CHOLECALCIFEROL
  13. LEXAPRO [Concomitant]
     Active Substance: ESCITALOPRAM OXALATE
  14. LITHIUM CARBONATE. [Concomitant]
     Active Substance: LITHIUM CARBONATE
  15. ADVIL [Concomitant]
     Active Substance: IBUPROFEN
  16. XYREM [Suspect]
     Active Substance: SODIUM OXYBATE
     Dosage: DOSE ADJUSTMENTS
     Route: 048
  17. ADDERALL XR [Concomitant]
     Active Substance: AMPHETAMINE ASPARTATE\AMPHETAMINE SULFATE\DEXTROAMPHETAMINE SACCHARATE\DEXTROAMPHETAMINE SULFATE
  18. MELATONIN [Concomitant]
     Active Substance: MELATONIN
  19. AUGMENTIN [Concomitant]
     Active Substance: AMOXICILLIN\CLAVULANATE POTASSIUM
  20. CLONAZEPAM. [Concomitant]
     Active Substance: CLONAZEPAM
  21. VITAMIN B12 [Concomitant]
     Active Substance: CYANOCOBALAMIN
  22. PANTOPRAZOLE SODIUM DR [Concomitant]
     Active Substance: PANTOPRAZOLE SODIUM
  23. LITHIUM CARBONATE ER [Concomitant]
     Active Substance: LITHIUM CARBONATE
  24. KLONOPIN [Concomitant]
     Active Substance: CLONAZEPAM
  25. LAMOTRIGINE. [Concomitant]
     Active Substance: LAMOTRIGINE
  26. OMEPRAZOLE DR [Concomitant]
     Active Substance: OMEPRAZOLE

REACTIONS (2)
  - Anxiety [Unknown]
  - Dyspnoea [Unknown]
